FAERS Safety Report 8546337 (Version 3)
Quarter: 2012Q4

REPORT INFORMATION
  Report Type: Report from Study
  Country: DE (occurrence: DE)
  Receive Date: 20120504
  Receipt Date: 20120830
  Transmission Date: 20130627
  Serious: Yes (Other)
  Sender: FDA-Public Use
  Company Number: DE-CELGENEUS-062-C5013-12042226

PATIENT
  Age: 75 Year
  Sex: Male
  Weight: 90.6 kg

DRUGS (11)
  1. CC-5013 [Suspect]
     Indication: MULTIPLE MYELOMA
     Dosage: 7.5 Milligram
     Route: 048
     Dates: start: 20080212
  2. CC-5013 [Suspect]
     Dosage: 7.5 Milligram
     Route: 048
     Dates: end: 20111106
  3. MELPHALAN [Suspect]
     Indication: MULTIPLE MYELOMA
     Dosage: 16 Milligram
     Route: 048
     Dates: start: 20080212
  4. MELPHALAN [Suspect]
     Dosage: 16 Milligram
     Route: 048
     Dates: end: 20081116
  5. PREDNISONE [Suspect]
     Indication: MULTIPLE MYELOMA
     Dosage: 178 Milligram
     Route: 048
     Dates: start: 20080212
  6. PREDNISONE [Suspect]
     Dosage: 178 Milligram
     Route: 048
     Dates: end: 20081116
  7. ACETYLSALICYLIC ACID [Concomitant]
     Indication: THROMBOSIS PROPHYLAXIS
     Route: 048
     Dates: start: 20100920, end: 20120229
  8. DIOVAN [Concomitant]
     Indication: HYPERTENSION
     Route: 048
     Dates: start: 20110124, end: 20120227
  9. DIOVAN [Concomitant]
     Route: 048
     Dates: start: 20120404, end: 20120411
  10. RAMIPRIL [Concomitant]
     Indication: HYPERTENSION
     Route: 048
     Dates: start: 20120412
  11. RAMIPRIL [Concomitant]
     Route: 048
     Dates: start: 20120404, end: 20120411

REACTIONS (1)
  - Myelodysplastic syndrome [Not Recovered/Not Resolved]
